FAERS Safety Report 26085100 (Version 1)
Quarter: 2025Q4

REPORT INFORMATION
  Report Type: Spontaneous
  Country: GB (occurrence: GB)
  Receive Date: 20251125
  Receipt Date: 20251125
  Transmission Date: 20260117
  Serious: Yes (Other)
  Sender: TEVA
  Company Number: GB-TEVA-VS-3396447

PATIENT
  Age: 51 Year
  Sex: Female

DRUGS (3)
  1. BUDESONIDE [Suspect]
     Active Substance: BUDESONIDE
     Indication: Colitis microscopic
     Route: 065
  2. DENOSUMAB [Suspect]
     Active Substance: DENOSUMAB
     Indication: Osteoporosis
     Dosage: 2 DOSES
     Route: 065
  3. RISEDRONIC ACID [Suspect]
     Active Substance: RISEDRONIC ACID
     Indication: Osteoporosis
     Route: 065

REACTIONS (1)
  - Osteonecrosis of jaw [Unknown]
